FAERS Safety Report 9369640 (Version 2)
Quarter: 2013Q3

REPORT INFORMATION
  Report Type: Spontaneous
  Country: DE (occurrence: DE)
  Receive Date: 20130626
  Receipt Date: 20130906
  Transmission Date: 20140515
  Serious: Yes (Hospitalization, Other)
  Sender: FDA-Public Use
  Company Number: DE-UCBSA-090137

PATIENT
  Sex: Female

DRUGS (4)
  1. VIMPAT IV [Suspect]
     Indication: EPILEPSY
     Dosage: UNSPECIFIED
     Route: 042
     Dates: start: 201301
  2. VIMPAT TABLETS [Suspect]
     Indication: EPILEPSY
     Dates: start: 2013, end: 2013
  3. VIMPAT TABLETS [Suspect]
     Indication: EPILEPSY
     Dosage: UNSPECIFIED
     Dates: start: 2013, end: 2013
  4. KEPPRA [Suspect]
     Indication: STATUS EPILEPTICUS

REACTIONS (2)
  - Epilepsy [Recovered/Resolved]
  - Hallucination [Recovered/Resolved]
